FAERS Safety Report 21195160 (Version 1)
Quarter: 2022Q3

REPORT INFORMATION
  Report Type: Spontaneous
  Country: ES (occurrence: ES)
  Receive Date: 20220810
  Receipt Date: 20220810
  Transmission Date: 20221027
  Serious: Yes (Death, Hospitalization, Other)
  Sender: FDA-Public Use
  Company Number: ES-AMGEN-ESPSP2022134230

PATIENT

DRUGS (5)
  1. TRASTUZUMAB [Suspect]
     Active Substance: TRASTUZUMAB
     Indication: Breast cancer
     Dosage: UNK
     Route: 065
  2. TAMOXIFEN [Concomitant]
     Active Substance: TAMOXIFEN
  3. LETROZOLE [Concomitant]
     Active Substance: LETROZOLE
  4. PALBOCICLIB [Concomitant]
     Active Substance: PALBOCICLIB
  5. CAPECITABINE [Concomitant]
     Active Substance: CAPECITABINE

REACTIONS (5)
  - Unevaluable event [Unknown]
  - Embolic stroke [Unknown]
  - Cerebral infarction [Unknown]
  - Pneumonia [Fatal]
  - Coronavirus infection [Unknown]
